FAERS Safety Report 18001791 (Version 12)
Quarter: 2025Q2

REPORT INFORMATION
  Report Type: Report from Study
  Country: DE (occurrence: DE)
  Receive Date: 20200709
  Receipt Date: 20250611
  Transmission Date: 20250716
  Serious: Yes (Hospitalization, Other)
  Sender: MYLAN
  Company Number: DE-002147023-NVSC2020DE172683

PATIENT
  Sex: Female
  Weight: 72 kg

DRUGS (13)
  1. MIRTAZAPINE [Suspect]
     Active Substance: MIRTAZAPINE
     Indication: Product used for unknown indication
     Dosage: 30 MG, QD (IN THE EVENING)
  2. NALOXONE HYDROCHLORIDE\TILIDINE HYDROCHLORIDE [Suspect]
     Active Substance: NALOXONE HYDROCHLORIDE\TILIDINE HYDROCHLORIDE
     Indication: Product used for unknown indication
     Dosage: UNK UNK, BID (ONCE IN THE MORNING, ONCE IN THE EVENING)
  3. PREGABALIN [Suspect]
     Active Substance: PREGABALIN
     Indication: Product used for unknown indication
     Dosage: 75 MG, BID (IN THE MORNING, IN THE EVENING)
  4. QUETIAPINE [Suspect]
     Active Substance: QUETIAPINE
     Indication: Product used for unknown indication
     Dosage: 200 MG, QD (AT NIGHT)
  5. ESCITALOPRAM [Suspect]
     Active Substance: ESCITALOPRAM OXALATE
     Indication: Product used for unknown indication
     Dosage: 10 MG, QD (IN THE MORNING)
  6. LETROZOLE [Suspect]
     Active Substance: LETROZOLE
     Indication: Breast cancer
     Dosage: 2.5 MILLIGRAM, QD
     Dates: start: 20200211, end: 20210528
  7. KISQALI [Suspect]
     Active Substance: RIBOCICLIB SUCCINATE
     Indication: Breast cancer
     Dosage: 200 MG, QD (SCHEMA 21 DAYS INTAKE, 7 DAYS PAUSE)
     Dates: start: 20200211, end: 20200307
  8. KISQALI [Suspect]
     Active Substance: RIBOCICLIB SUCCINATE
     Dosage: 400 MG, QD (SCHEMA 21 DAYS INTAKE, 7 DAYS PAUSE)
     Dates: start: 20200308, end: 20200617
  9. KISQALI [Suspect]
     Active Substance: RIBOCICLIB SUCCINATE
     Dosage: 400 MG, QD (SCHEMA 21 DAYS INTAKE, 7 DAYS PAUSE)
     Dates: start: 20200809, end: 20201005
  10. KISQALI [Suspect]
     Active Substance: RIBOCICLIB SUCCINATE
     Dosage: 200 MG, QD (SCHEMA 21 DAYS INTAKE, 7 DAYS PAUSE)
     Dates: start: 20201006, end: 20210509
  11. KISQALI [Suspect]
     Active Substance: RIBOCICLIB SUCCINATE
     Dosage: 400 MG, QD (SCHEMA 21 DAYS INTAKE, 7 DAYS PAUSE)
     Dates: start: 20200809, end: 20210528
  12. NALOXONE [Suspect]
     Active Substance: NALOXONE
     Indication: Product used for unknown indication
     Dosage: UNK, BID (ONCE IN THE MORNING, ONCE IN THE EVENING)
  13. TILIDINE [Suspect]
     Active Substance: TILIDINE
     Indication: Product used for unknown indication

REACTIONS (8)
  - Haematemesis [Recovered/Resolved]
  - Upper gastrointestinal haemorrhage [Recovered/Resolved]
  - Diarrhoea [Recovered/Resolved]
  - Vomiting [Recovered/Resolved]
  - Electrocardiogram QT prolonged [Recovered/Resolved]
  - Leukopenia [Not Recovered/Not Resolved]
  - Anaemia [Not Recovered/Not Resolved]
  - Off label use [Unknown]

NARRATIVE: CASE EVENT DATE: 20200330
